FAERS Safety Report 19077048 (Version 1)
Quarter: 2021Q1

REPORT INFORMATION
  Report Type: Report from Study
  Country: DE (occurrence: BR)
  Receive Date: 20210331
  Receipt Date: 20210331
  Transmission Date: 20210420
  Serious: Yes (Hospitalization, Other)
  Sender: FDA-Public Use
  Company Number: BR-ELI_LILLY_AND_COMPANY-BR202011001280

PATIENT
  Age: 72 Year
  Sex: Male

DRUGS (1)
  1. CETUXIMAB. [Suspect]
     Active Substance: CETUXIMAB
     Indication: HEAD AND NECK CANCER
     Dosage: UNK UNK, OTHER(ONCE EVERY 15 DAYS)
     Route: 042
     Dates: start: 20190402

REACTIONS (6)
  - Vomiting [Recovered/Resolved]
  - Weight decreased [Recovering/Resolving]
  - Gastrooesophageal reflux disease [Recovering/Resolving]
  - Pneumonia aspiration [Recovered/Resolved]
  - Off label use [Unknown]
  - Diarrhoea [Recovered/Resolved]

NARRATIVE: CASE EVENT DATE: 201911
